FAERS Safety Report 23478982 (Version 1)
Quarter: 2024Q1

REPORT INFORMATION
  Report Type: Report from Study
  Country: AE (occurrence: AE)
  Receive Date: 20240205
  Receipt Date: 20240205
  Transmission Date: 20240410
  Serious: No
  Sender: FDA-Public Use
  Company Number: AE-IPSEN Group, Research and Development-2023-22771

PATIENT
  Sex: Male

DRUGS (7)
  1. CABOMETYX [Suspect]
     Active Substance: CABOZANTINIB S-MALATE
     Indication: Renal cell carcinoma
     Dosage: EVERY OTHER DAY
     Route: 048
     Dates: start: 20221225, end: 20230613
  2. CABOMETYX [Suspect]
     Active Substance: CABOZANTINIB S-MALATE
     Dosage: EVERY OTHER DAY
     Route: 048
     Dates: start: 20230915
  3. OPDIVO [Concomitant]
     Active Substance: NIVOLUMAB
     Indication: Renal cell carcinoma
     Dosage: 240 MG, Q2WEEKS
  4. PANTOPRAZOLE [Concomitant]
     Active Substance: PANTOPRAZOLE
     Indication: Abdominal discomfort
     Route: 048
  5. ASPIRIN [Concomitant]
     Active Substance: ASPIRIN
     Indication: Cerebrovascular accident
     Dosage: UNK
     Route: 048
  6. APIXABAN [Concomitant]
     Active Substance: APIXABAN
     Indication: Cerebrovascular accident
     Dosage: UNK
     Route: 048
  7. HYDROCORTISONE [Concomitant]
     Active Substance: HYDROCORTISONE
     Indication: Adrenal insufficiency
     Dosage: UNK
     Route: 048

REACTIONS (6)
  - Diarrhoea [Unknown]
  - Constipation [Unknown]
  - Decreased appetite [Unknown]
  - Dysgeusia [Unknown]
  - Weight decreased [Unknown]
  - Off label use [Unknown]
